FAERS Safety Report 8552393-1 (Version None)
Quarter: 2012Q3

REPORT INFORMATION
  Report Type: 
  Country: None (occurrence: None)
  Receive Date: 20120731
  Receipt Date: 20120726
  Transmission Date: 20120928
  Serious: Yes (Death, Life-Threatening, Other)
  Sender: FDA-Public Use
  Company Number: SE-GENZYME-CLOF-1002240

PATIENT
  Sex: Male
  Weight: 64 kg

DRUGS (9)
  1. CYCLOPHOSPHAMIDE [Suspect]
     Indication: ACUTE LYMPHOCYTIC LEUKAEMIA
     Dosage: 280 MG, QD
     Route: 065
     Dates: start: 20111117, end: 20111121
  2. MEROPENEM [Concomitant]
     Indication: INFECTION
     Dosage: 1500 MG, QD
     Route: 065
     Dates: start: 20111004
  3. ETOPOSIDE [Suspect]
     Indication: ACUTE LYMPHOCYTIC LEUKAEMIA
     Dosage: 80 MG, QD
     Route: 065
     Dates: start: 20111117, end: 20111121
  4. CLOFARABINE [Suspect]
     Indication: ACUTE LYMPHOCYTIC LEUKAEMIA
     Dosage: 40 MG/M2, QD
     Route: 042
     Dates: start: 20111024, end: 20111028
  5. AMBISOME [Concomitant]
     Indication: PROPHYLAXIS
     Dosage: 100 MG, QD
     Route: 065
     Dates: start: 20111022
  6. GLUCOSE [Concomitant]
     Indication: SUPPORTIVE CARE
     Dosage: 2400 ML, QD
     Route: 065
     Dates: start: 20111117, end: 20111121
  7. BETAPRED [Concomitant]
     Indication: ANTIEMETIC SUPPORTIVE CARE
     Dosage: 4 MG, QD
     Route: 065
     Dates: start: 20111117, end: 20111121
  8. GLUCOSE [Concomitant]
     Dosage: 1000 ML, QD
     Route: 065
     Dates: start: 20111124
  9. VALTREX [Concomitant]
     Indication: PROPHYLAXIS
     Dosage: 500 MG, QD
     Route: 065
     Dates: start: 20111107

REACTIONS (5)
  - MULTI-ORGAN FAILURE [None]
  - ACUTE LYMPHOCYTIC LEUKAEMIA [None]
  - ADENOVIRAL HEPATITIS [None]
  - ADENOVIRUS INFECTION [None]
  - ENCEPHALITIS [None]
